FAERS Safety Report 6438387-0 (Version None)
Quarter: 2009Q4

REPORT INFORMATION
  Report Type: 
  Country: None (occurrence: None)
  Receive Date: 20091112
  Receipt Date: 20091103
  Transmission Date: 20100525
  Serious: Yes (Other)
  Sender: FDA-Public Use
  Company Number: GB-AMGEN-QUU372533

PATIENT
  Sex: Male
  Weight: 69 kg

DRUGS (16)
  1. ARANESP [Suspect]
     Indication: RENAL FAILURE CHRONIC
  2. SEVELAMER [Concomitant]
  3. ASPIRIN [Concomitant]
  4. METOCLOPRAMIDE [Concomitant]
  5. NOVORAPID [Concomitant]
  6. LANTUS [Concomitant]
  7. ISOSORBIDE MONONITRADE [Concomitant]
  8. NEBIVOLOL [Concomitant]
  9. NICORANDIL [Concomitant]
  10. SODIUM BICARBONATE IN PLASTIC CONTAINER [Concomitant]
  11. OMEPRAZOLE [Concomitant]
  12. LISINOPRIL [Concomitant]
  13. FOLIC ACID [Concomitant]
  14. NITROGLYCERIN [Concomitant]
     Route: 060
  15. SENNA [Concomitant]
  16. MIMPARA [Concomitant]
     Route: 048

REACTIONS (3)
  - ACUTE MYOCARDIAL INFARCTION [None]
  - HAEMOGLOBIN DECREASED [None]
  - LEFT VENTRICULAR FAILURE [None]
